FAERS Safety Report 4368817-X (Version None)
Quarter: 2004Q2

REPORT INFORMATION
  Report Type: 
  Country: None (occurrence: None)
  Receive Date: 20040528
  Receipt Date: 20040521
  Transmission Date: 20050107
  Serious: Yes (Life-Threatening, Hospitalization, Disabling)
  Sender: FDA-Public Use
  Company Number: 232360K04USA

PATIENT
  Age: 52 Year
  Sex: Male
  Weight: 48 kg

DRUGS (1)
  1. REBIF [Suspect]
     Indication: MULTIPLE SCLEROSIS
     Dosage: 44 MCG, 3 IN 1 WEEK, SUBCUTANEOUS
     Route: 058
     Dates: start: 20030905, end: 20031124

REACTIONS (9)
  - ASTHENIA [None]
  - BALANCE DISORDER [None]
  - BRAIN ABSCESS [None]
  - CSF TEST ABNORMAL [None]
  - DIFFICULTY IN WALKING [None]
  - DIPLOPIA [None]
  - EYE DISORDER [None]
  - EYELID PTOSIS [None]
  - INFLAMMATION [None]
